FAERS Safety Report 6380504-5 (Version None)
Quarter: 2009Q3

REPORT INFORMATION
  Report Type: 
  Country: None (occurrence: None)
  Receive Date: 20090923
  Receipt Date: 20090909
  Transmission Date: 20100115
  Serious: Yes (Other)
  Sender: FDA-Public Use
  Company Number: 8052097

PATIENT
  Age: 66 Year
  Sex: Female

DRUGS (5)
  1. PREDNISOLONE [Suspect]
     Indication: ASTHMA
  2. PREDNISOLONE [Suspect]
     Indication: DERMATITIS ATOPIC
  3. CORTICOSTEROIDS [Suspect]
     Indication: DERMATITIS ATOPIC
     Dosage: TOP
     Route: 061
  4. DOXYCYCLINE [Suspect]
     Dosage: PO
     Route: 048
  5. SODIUM STIBOGLUCONATE [Suspect]
     Indication: LEISHMANIASIS
     Dosage: IV
     Route: 042

REACTIONS (9)
  - BLOOD AMYLASE INCREASED [None]
  - DERMATITIS ATOPIC [None]
  - ECZEMA [None]
  - LEISHMANIASIS [None]
  - NODULE [None]
  - PRURIGO [None]
  - ROSACEA [None]
  - SPLENOMEGALY [None]
  - TYPE 2 DIABETES MELLITUS [None]
